FAERS Safety Report 15428233 (Version 4)
Quarter: 2019Q3

REPORT INFORMATION
  Report Type: Report from Study
  Country: US (occurrence: US)
  Receive Date: 20180926
  Receipt Date: 20190830
  Transmission Date: 20191004
  Serious: Yes (Hospitalization, Other)
  Sender: FDA-Public Use
  Company Number: US-BIOGEN-2018BI00635754

PATIENT
  Sex: Female

DRUGS (3)
  1. AVONEX [Suspect]
     Active Substance: INTERFERON BETA-1A
     Indication: MULTIPLE SCLEROSIS
     Route: 050
     Dates: start: 2000
  2. AVONEX [Suspect]
     Active Substance: INTERFERON BETA-1A
     Route: 050
     Dates: end: 2019
  3. AVONEX [Suspect]
     Active Substance: INTERFERON BETA-1A
     Route: 050
     Dates: start: 20021217, end: 20081001

REACTIONS (7)
  - Urinary retention [Not Recovered/Not Resolved]
  - Uterine cancer [Not Recovered/Not Resolved]
  - Breast cancer [Not Recovered/Not Resolved]
  - Blood calcium increased [Unknown]
  - Insomnia [Not Recovered/Not Resolved]
  - Parathyroid disorder [Not Recovered/Not Resolved]
  - Bladder dysfunction [Not Recovered/Not Resolved]

NARRATIVE: CASE EVENT DATE: 2016
